FAERS Safety Report 10446270 (Version 3)
Quarter: 2014Q3

REPORT INFORMATION
  Report Type: Spontaneous
  Country: FI (occurrence: FI)
  Receive Date: 20140911
  Receipt Date: 20140916
  Transmission Date: 20150326
  Serious: Yes (Hospitalization)
  Sender: FDA-Public Use
  Company Number: FI-ROCHE-1459741

PATIENT
  Age: 46 Year
  Sex: Female

DRUGS (5)
  1. MABTHERA [Suspect]
     Active Substance: RITUXIMAB
     Indication: DERMATOMYOSITIS
     Dosage: 1000 MG + 1000 MG, TOTALLY SEVEN CYCLES
     Route: 042
     Dates: start: 201103, end: 201405
  2. PREDNISOLON [Concomitant]
     Active Substance: PREDNISOLONE
     Route: 065
  3. PREDNISOLON [Concomitant]
     Active Substance: PREDNISOLONE
     Indication: DERMATOMYOSITIS
     Dosage: START FROM 60 MG DECREASED TO 5 MG ONCE WEEKLY
     Route: 048
     Dates: start: 2008
  4. METHOTREXATE [Concomitant]
     Active Substance: METHOTREXATE
     Indication: DERMATOMYOSITIS
     Dosage: START FROM 25 MG DECREASED TO15 MG ONCE WEEKLY
     Route: 058
     Dates: start: 200810, end: 201405
  5. METOJECT [Concomitant]
     Active Substance: METHOTREXATE SODIUM
     Indication: DERMATOMYOSITIS
     Route: 065

REACTIONS (1)
  - Progressive multifocal leukoencephalopathy [Not Recovered/Not Resolved]

NARRATIVE: CASE EVENT DATE: 201406
